FAERS Safety Report 14658039 (Version 1)
Quarter: 2018Q1

REPORT INFORMATION
  Report Type: Spontaneous
  Country: US (occurrence: US)
  Receive Date: 20180320
  Receipt Date: 20180320
  Transmission Date: 20180509
  Serious: No
  Sender: FDA-Public Use
  Company Number: US-TEVA-819528USA

PATIENT
  Sex: Female

DRUGS (1)
  1. NORTRIPTYLINE HYDROCHLORIDE, 10 MG [Suspect]
     Active Substance: NORTRIPTYLINE HYDROCHLORIDE
     Indication: NEUROPATHY PERIPHERAL

REACTIONS (3)
  - Drug ineffective [Unknown]
  - Condition aggravated [None]
  - Neuralgia [Unknown]
